FAERS Safety Report 19722921 (Version 1)
Quarter: 2021Q3

REPORT INFORMATION
  Report Type: Spontaneous
  Country: GB (occurrence: GB)
  Receive Date: 20210820
  Receipt Date: 20210820
  Transmission Date: 20211014
  Serious: Yes (Other)
  Sender: FDA-Public Use
  Company Number: GB-JNJFOC-20171218587

PATIENT
  Age: 73 Year
  Sex: Female
  Weight: 50.2 kg

DRUGS (20)
  1. VELCADE [Suspect]
     Active Substance: BORTEZOMIB
     Dosage: DAY 4 OF CYCLE 2, DOSE AS 2 MG, COMPOUNDED WITH SODIUM CHLORIDE, ON DAYS 1, 4, 8, 11, 22, 25, 29, 32
     Route: 058
     Dates: start: 20171106, end: 20171106
  2. MELPHALAN. [Suspect]
     Active Substance: MELPHALAN
     Route: 065
  3. PREDNISONE. [Suspect]
     Active Substance: PREDNISONE
     Indication: PLASMA CELL LEUKAEMIA
     Route: 065
     Dates: start: 20171103, end: 20171106
  4. PREDNISONE. [Suspect]
     Active Substance: PREDNISONE
     Route: 065
  5. MELPHALAN. [Suspect]
     Active Substance: MELPHALAN
     Indication: PLASMA CELL LEUKAEMIA
     Route: 065
     Dates: start: 20171103, end: 20171106
  6. VELCADE [Suspect]
     Active Substance: BORTEZOMIB
     Dosage: DAY 8 OF CYCLE 2, DOSE: 2 MG, COMPOUNDED WITH SODIUM CHLORIDE, ON DAYS 1, 4, 8, 11, 22, 25, 29, 32
     Route: 058
     Dates: start: 20171110, end: 20171110
  7. OMEPRAZOLE. [Concomitant]
     Active Substance: OMEPRAZOLE
     Dosage: EVERY MORNING
     Route: 065
  8. DUROGESIC DTRANS [Suspect]
     Active Substance: FENTANYL
     Indication: PRODUCT USED FOR UNKNOWN INDICATION
     Dosage: 12 MCG
     Route: 062
     Dates: start: 20171108
  9. RAMIPRIL. [Concomitant]
     Active Substance: RAMIPRIL
     Dosage: EVERY MORNING
     Route: 065
  10. VELCADE [Suspect]
     Active Substance: BORTEZOMIB
     Indication: PLASMA CELL LEUKAEMIA
     Dosage: ON DAYS 1, 4, 8, 11, 22, 25, 29, 32, DAY 1 OF CYCLE 2; DOSE: 2 MG, COMPOUNDED WITH SODIUM CHLORIDE
     Route: 058
     Dates: start: 20171103, end: 20171103
  11. VELCADE [Suspect]
     Active Substance: BORTEZOMIB
     Dosage: CYCLE 1, ON DAYS 1, 4, 8, 11, 22, 25, 29 AND 32
     Route: 058
  12. SODIUM CHLORIDE. [Suspect]
     Active Substance: SODIUM CHLORIDE
     Route: 065
     Dates: start: 20171110, end: 20171110
  13. BENDROFLUMETHIAZIDE [Concomitant]
     Active Substance: BENDROFLUMETHIAZIDE
     Dosage: EVERY MORNING
     Route: 065
  14. ALLOPURINOL. [Suspect]
     Active Substance: ALLOPURINOL
     Route: 065
     Dates: start: 20171120
  15. SODIUM CHLORIDE. [Suspect]
     Active Substance: SODIUM CHLORIDE
     Indication: MEDICATION DILUTION
     Route: 065
     Dates: start: 20171103, end: 20171103
  16. SODIUM CHLORIDE. [Suspect]
     Active Substance: SODIUM CHLORIDE
     Route: 065
     Dates: start: 20171106, end: 20171106
  17. ALLOPURINOL. [Suspect]
     Active Substance: ALLOPURINOL
     Indication: PRODUCT USED FOR UNKNOWN INDICATION
     Route: 065
     Dates: start: 20171104
  18. DEXAMETHASONE. [Suspect]
     Active Substance: DEXAMETHASONE
     Indication: PRODUCT USED FOR UNKNOWN INDICATION
     Route: 065
     Dates: start: 20171102, end: 20171106
  19. SERTRALINE [Concomitant]
     Active Substance: SERTRALINE HYDROCHLORIDE
     Dosage: EVERY MORNING
     Route: 065
  20. METOCLOPRAMIDE. [Concomitant]
     Active Substance: METOCLOPRAMIDE
     Route: 065

REACTIONS (8)
  - Emotional distress [Not Recovered/Not Resolved]
  - Disorientation [Recovered/Resolved]
  - Agitation [Not Recovered/Not Resolved]
  - Hallucination [Recovered/Resolved]
  - Disturbance in social behaviour [Recovered/Resolved]
  - Abnormal behaviour [Not Recovered/Not Resolved]
  - Confusional state [Not Recovered/Not Resolved]
  - Paranoia [Not Recovered/Not Resolved]

NARRATIVE: CASE EVENT DATE: 20171111
